FAERS Safety Report 6084534-2 (Version None)
Quarter: 2009Q1

REPORT INFORMATION
  Report Type: 
  Country: None (occurrence: None)
  Receive Date: 20090217
  Receipt Date: 20090108
  Transmission Date: 20090719
  Serious: Yes (Hospitalization)
  Sender: FDA-Public Use
  Company Number: 1-17543227

PATIENT
  Age: 54 Year
  Sex: Female

DRUGS (5)
  1. FENTANYL-75 [Suspect]
     Indication: PROCEDURAL PAIN
     Dosage: 75MCG/HR, TRANSDERMAL
     Route: 062
     Dates: start: 20081022, end: 20081023
  2. ZOPICLONE [Concomitant]
  3. CHLORPHENIRAMINE MALEATE [Concomitant]
  4. FLUOXETINE [Concomitant]
  5. LANSOPRAZOLE [Concomitant]

REACTIONS (1)
  - ASPIRATION [None]
